FAERS Safety Report 4839879-8 (Version None)
Quarter: 2005Q4

REPORT INFORMATION
  Report Type: 
  Country: None (occurrence: None)
  Receive Date: 20051129
  Receipt Date: 20051116
  Transmission Date: 20060501
  Serious: Yes (Death)
  Sender: FDA-Public Use
  Company Number: FR-ROCHE-425307

PATIENT
  Sex: Male

DRUGS (1)
  1. XELODA [Suspect]
     Route: 065
     Dates: start: 20050411, end: 20050424

REACTIONS (4)
  - ABDOMINAL PAIN [None]
  - COMA [None]
  - NAUSEA [None]
  - SPEECH DISORDER [None]
